FAERS Safety Report 7200816-2 (Version None)
Quarter: 2010Q4

REPORT INFORMATION
  Report Type: 
  Country: None (occurrence: None)
  Receive Date: 20101228
  Receipt Date: 20101223
  Transmission Date: 20110411
  Serious: Yes (Death, Hospitalization)
  Sender: FDA-Public Use
  Company Number: GR-PFIZER INC-2010165669

PATIENT
  Age: 75 Year
  Sex: Male
  Weight: 100 kg

DRUGS (5)
  1. PIPERACILLIN AND TAZOBACTAM [Suspect]
     Indication: ABDOMINAL INFECTION
     Dosage: 4.5 G, 4X/DAY
     Route: 042
     Dates: start: 20100508, end: 20100518
  2. METRONIDAZOLE [Suspect]
     Indication: ABDOMINAL INFECTION
     Dosage: 500 MG, 3X/DAY
     Route: 042
     Dates: start: 20100428, end: 20100503
  3. CLAVULANIC ACID/TICARCILLIN DISODIUM [Suspect]
     Indication: ABDOMINAL INFECTION
     Dosage: 5.2 G, 4X/DAY
     Route: 042
     Dates: start: 20100428, end: 20100503
  4. SANDOSTATIN [Concomitant]
     Indication: DIARRHOEA
     Dosage: 0.5 MG, 1X/DAY
     Route: 042
     Dates: start: 20100525, end: 20100528
  5. PANTOPRAZOLE [Concomitant]
     Indication: PROPHYLAXIS
     Dosage: 20 MG, 1X/DAY
     Route: 042
     Dates: start: 20100525, end: 20100528

REACTIONS (1)
  - INTRA-ABDOMINAL HAEMORRHAGE [None]
